FAERS Safety Report 6382240-8 (Version None)
Quarter: 2009Q3

REPORT INFORMATION
  Report Type: 
  Country: None (occurrence: None)
  Receive Date: 20090928
  Receipt Date: 20090928
  Transmission Date: 20100115
  Serious: Yes (Life-Threatening, Hospitalization)
  Sender: FDA-Public Use
  Company Number: None

PATIENT
  Sex: Female
  Weight: 79.8331 kg

DRUGS (3)
  1. PREDNISONE TAB [Suspect]
     Indication: CHRONIC OBSTRUCTIVE PULMONARY DISEASE
     Dosage: 20MG X 3 = 60MG 3 PER DAY FOR 3 DAYS - TABS
     Dates: start: 20090707
  2. PREDNISONE TAB [Suspect]
     Indication: CHRONIC OBSTRUCTIVE PULMONARY DISEASE
     Dosage: 20MG X 3 = 60MG 3 PER DAY FOR 3 DAYS - TABS
     Dates: start: 20090708
  3. SOLU-MEDROL [Suspect]
     Indication: CHRONIC OBSTRUCTIVE PULMONARY DISEASE
     Dosage: 125 MG INS-IV INTRAVENOUS
     Route: 042
     Dates: start: 20090708

REACTIONS (6)
  - ANAPHYLACTIC SHOCK [None]
  - CHEST DISCOMFORT [None]
  - DRUG HYPERSENSITIVITY [None]
  - DYSPNOEA [None]
  - FEELING HOT [None]
  - TACHYPNOEA [None]
